FAERS Safety Report 16462782 (Version 1)
Quarter: 2019Q2

REPORT INFORMATION
  Report Type: Spontaneous
  Country: US (occurrence: US)
  Receive Date: 20190512
  Receipt Date: 20190512
  Transmission Date: 20190711
  Serious: Yes (Life-Threatening)
  Sender: FDA-Public Use
  Company Number: None

PATIENT
  Age: 50 Year
  Sex: Male

DRUGS (1)
  1. CALCIUM CARBONATE. [Suspect]
     Active Substance: CALCIUM CARBONATE
     Indication: SECONDARY HYPOGONADISM
     Route: 048
     Dates: start: 20190405, end: 20190412

REACTIONS (4)
  - Urticaria [None]
  - Rash [None]
  - Pruritus [None]
  - Angioedema [None]

NARRATIVE: CASE EVENT DATE: 20190412
